FAERS Safety Report 6166313-0 (Version None)
Quarter: 2009Q2

REPORT INFORMATION
  Report Type: 
  Country: None (occurrence: None)
  Receive Date: 20090422
  Receipt Date: 20090422
  Transmission Date: 20091009
  Serious: No
  Sender: FDA-Public Use
  Company Number: None

PATIENT
  Sex: Female
  Weight: 61.2356 kg

DRUGS (3)
  1. KAPIDEX [Suspect]
     Indication: GASTROOESOPHAGEAL REFLUX DISEASE
     Dosage: 60 MG 1 A DAY ORAL
     Route: 048
     Dates: start: 20090305
  2. VALIUM [Concomitant]
  3. FIORICET [Concomitant]

REACTIONS (7)
  - DIARRHOEA [None]
  - DIZZINESS [None]
  - DRY SKIN [None]
  - DYSGEUSIA [None]
  - MYALGIA [None]
  - SKIN EXFOLIATION [None]
  - VOMITING [None]
